FAERS Safety Report 19707426 (Version 1)
Quarter: 2021Q3

REPORT INFORMATION
  Report Type: Report from Study
  Country: CN (occurrence: CN)
  Receive Date: 20210817
  Receipt Date: 20210817
  Transmission Date: 20211014
  Serious: Yes (Other)
  Sender: FDA-Public Use
  Company Number: CN-PFIZER INC-202101007539

PATIENT

DRUGS (5)
  1. CISPLATIN. [Suspect]
     Active Substance: CISPLATIN
     Indication: PENILE SQUAMOUS CELL CARCINOMA
     Dosage: 25 MG/M2, CYCLIC (ON DAY 1 TO DAY 3, EVERY 3?4 WEEKS)
  2. IFOSFAMIDE. [Suspect]
     Active Substance: IFOSFAMIDE
     Indication: PENILE SQUAMOUS CELL CARCINOMA
     Dosage: 1.2G/M2 CYCLIC (ON DAY 1 TO DAY 3, EVERY 3?4 WEEKS)
  3. TORIPALIMAB. [Suspect]
     Active Substance: TORIPALIMAB
     Indication: PENILE SQUAMOUS CELL CARCINOMA
     Dosage: 240 MG, CYCLIC, (ON DAY 1, EVERY 3?4 WEEKS)
  4. NIMOTUZUMAB [Suspect]
     Active Substance: NIMOTUZUMAB
     Indication: PENILE SQUAMOUS CELL CARCINOMA
     Dosage: 400 MG, CYCLIC (DAY 1, EVERY 3?4 WEEKS)
  5. PACLITAXEL. [Suspect]
     Active Substance: PACLITAXEL
     Indication: PENILE SQUAMOUS CELL CARCINOMA
     Dosage: 175 MG/M2, CYCLIC (ON DAY 1, EVERY 3?4 WEEKS)

REACTIONS (3)
  - Anaemia [Unknown]
  - Fatigue [Unknown]
  - Neutropenia [Unknown]
